FAERS Safety Report 25526352 (Version 1)
Quarter: 2025Q3

REPORT INFORMATION
  Report Type: Spontaneous
  Country: OM (occurrence: OM)
  Receive Date: 20250707
  Receipt Date: 20250707
  Transmission Date: 20251020
  Serious: Yes (Death)
  Sender: NOVARTIS
  Company Number: OM-002147023-NVSC2025OM107240

PATIENT
  Age: 40 Year
  Sex: Male

DRUGS (1)
  1. COSENTYX [Suspect]
     Active Substance: SECUKINUMAB
     Indication: Pityriasis rubra pilaris
     Dosage: 300 MG, QMO
     Route: 058
     Dates: start: 2023

REACTIONS (6)
  - Gastrointestinal haemorrhage [Fatal]
  - Lymphoma [Fatal]
  - Lymphadenopathy [Fatal]
  - Pityriasis rubra pilaris [Fatal]
  - Condition aggravated [Fatal]
  - Off label use [Fatal]

NARRATIVE: CASE EVENT DATE: 20230101
